FAERS Safety Report 6146541-0 (Version None)
Quarter: 2009Q2

REPORT INFORMATION
  Report Type: 
  Country: None (occurrence: None)
  Receive Date: 20090403
  Receipt Date: 20090319
  Transmission Date: 20091009
  Serious: Yes (Death)
  Sender: FDA-Public Use
  Company Number: 2009BM000070

PATIENT
  Age: 18 Year
  Sex: Female
  Weight: 20 kg

DRUGS (10)
  1. NAGLAZYME [Suspect]
     Indication: MUCOPOLYSACCHARIDOSIS VI
     Dosage: 20 GM; QW; IVDRP
     Route: 041
     Dates: start: 20060612, end: 20090316
  2. FUROSEMIDE [Concomitant]
  3. ALDACTONE [Concomitant]
  4. POTASSIUM CHLORIDE [Concomitant]
  5. DIGOXIN [Concomitant]
  6. MORPHINE [Concomitant]
  7. ATIVAN [Concomitant]
  8. PARACETAMOL [Concomitant]
  9. MOTRIN [Concomitant]
  10. CAPTOPRIL [Concomitant]

REACTIONS (3)
  - ARRHYTHMIA [None]
  - CARDIO-RESPIRATORY ARREST [None]
  - VENTRICULAR TACHYCARDIA [None]
